FAERS Safety Report 14217182 (Version 1)
Quarter: 2017Q4

REPORT INFORMATION
  Report Type: Spontaneous
  Country: US (occurrence: US)
  Receive Date: 20171122
  Receipt Date: 20171122
  Transmission Date: 20180321
  Serious: No
  Sender: FDA-Public Use
  Company Number: US-LUPIN PHARMACEUTICALS INC.-E2B_00007085

PATIENT
  Age: 39 Year
  Sex: Female
  Weight: 106.59 kg

DRUGS (4)
  1. METFORMIN HYDROCHLORIDE EXTENDED RELEASE TABLET USP 500 M G [Suspect]
     Active Substance: METFORMIN HYDROCHLORIDE
     Dosage: 2 DF,BID,
     Route: 048
     Dates: start: 20161202, end: 20161222
  2. METFORMIN HYDROCHLORIDE EXTENDED RELEASE TABLET USP 500 MG [Suspect]
     Active Substance: METFORMIN HYDROCHLORIDE
     Indication: DIABETES MELLITUS
     Dosage: 2 DF,BID,
     Route: 048
  3. METFORMIN HYDROCHLORIDE EXTENDED RELEASE TABLET USP 500 MG [Suspect]
     Active Substance: METFORMIN HYDROCHLORIDE
     Dosage: 2 DF,BID,
     Route: 048
     Dates: start: 20161223
  4. METFORMIN HYDROCHLORIDE EXTENDED RELEASE TABLET USP 500 MG [Suspect]
     Active Substance: METFORMIN HYDROCHLORIDE
     Dosage: 2 DF,BID,
     Route: 048
     Dates: start: 20161130, end: 20161201

REACTIONS (3)
  - Peripheral swelling [Not Recovered/Not Resolved]
  - Product quality issue [None]
  - Poor quality drug administered [Unknown]

NARRATIVE: CASE EVENT DATE: 20161130
